FAERS Safety Report 7997656-3 (Version None)
Quarter: 2011Q4

REPORT INFORMATION
  Report Type: 
  Country: None (occurrence: None)
  Receive Date: 20111221
  Receipt Date: 20111215
  Transmission Date: 20120403
  Serious: Yes (Other)
  Sender: FDA-Public Use
  Company Number: IT-ROCHE-1023431

PATIENT
  Sex: Female

DRUGS (5)
  1. HERCEPTIN [Suspect]
     Indication: BREAST CANCER
     Dosage: TRASTUZUMAB INJECTION. FIRST DOSE 4MG/KG FOLLOWED BY 2MG/KG WEEKLY
     Route: 042
     Dates: start: 20080107
  2. LAPATINIB [Suspect]
     Dates: start: 20080215
  3. LAPATINIB [Suspect]
     Indication: BREAST CANCER
     Route: 048
     Dates: start: 20080107, end: 20080125
  4. PACLITAXEL [Concomitant]
     Dates: start: 20080107
  5. LAPATINIB [Suspect]
     Dosage: TEMPORARILY INTERRUPTED
     Dates: start: 20080204, end: 20080211

REACTIONS (2)
  - ASPARTATE AMINOTRANSFERASE INCREASED [None]
  - ALANINE AMINOTRANSFERASE INCREASED [None]
